FAERS Safety Report 5875997-3 (Version None)
Quarter: 2008Q3

REPORT INFORMATION
  Report Type: 
  Country: None (occurrence: None)
  Receive Date: 20080905
  Receipt Date: 20080826
  Transmission Date: 20090109
  Serious: Yes (Other)
  Sender: FDA-Public Use
  Company Number: A-CH2008-21687

PATIENT
  Age: 53 Year
  Sex: Male
  Weight: 85 kg

DRUGS (10)
  1. ZAVESCA [Suspect]
     Indication: LIPIDOSIS
     Dosage: 500 MG, OD, ORAL
     Route: 048
     Dates: start: 20061228, end: 20080615
  2. ZAVESCA [Suspect]
     Indication: LIPIDOSIS
     Dosage: 500 MG, OD, ORAL
     Route: 048
     Dates: start: 20080616
  3. NEURONTIN [Concomitant]
  4. FOLIC ACID [Concomitant]
  5. KCL TAB [Concomitant]
  6. RAMIPRIL [Concomitant]
  7. NEXIUM (ESOMEPRAZOLE SODIUM) [Concomitant]
  8. TANSULOSINA (TAMSULOSIN) [Concomitant]
  9. TRAMADOL HCL [Concomitant]
  10. EVIAN FORTE (CAPS) [Concomitant]

REACTIONS (4)
  - DEMYELINATION [None]
  - DIARRHOEA [None]
  - MOTOR DYSFUNCTION [None]
  - TREMOR [None]
